FAERS Safety Report 7215639-8 (Version None)
Quarter: 2011Q1

REPORT INFORMATION
  Report Type: 
  Country: None (occurrence: None)
  Receive Date: 20110107
  Receipt Date: 20101228
  Transmission Date: 20110831
  Serious: Yes (Other)
  Sender: FDA-Public Use
  Company Number: US-BAYER-2010-008714

PATIENT
  Sex: Female
  Weight: 96 kg

DRUGS (5)
  1. ATACAND [Concomitant]
  2. ASPIRIN [Suspect]
     Indication: ISCHAEMIC HEART DISEASE PROPHYLAXIS
     Dosage: UNK
     Route: 048
  3. ZANTAC [Concomitant]
  4. PHILLIPS' LIQUID GELS STOOL SOFTENER [Suspect]
     Dosage: 2 DF, QD
     Route: 048
     Dates: start: 20101201
  5. PHILLIPS' COLON HEALTH [Suspect]
     Dosage: 1 DF, QD
     Route: 048
     Dates: start: 20101201

REACTIONS (2)
  - GASTRIC ULCER [None]
  - ABDOMINAL DISTENSION [None]
